FAERS Safety Report 9420918 (Version 1)
Quarter: 2013Q3

REPORT INFORMATION
  Report Type: Spontaneous
  Country: US (occurrence: US)
  Receive Date: 20130725
  Receipt Date: 20130725
  Transmission Date: 20140515
  Serious: Yes (Other)
  Sender: FDA-Public Use
  Company Number: US-ABBOTT-13P-163-1103990-00

PATIENT
  Age: 29 Year
  Sex: Female
  Weight: 68.1 kg

DRUGS (3)
  1. SYNTHROID [Suspect]
     Indication: THYROIDECTOMY
     Route: 048
  2. SYNTHROID [Suspect]
     Dates: start: 20130513
  3. PROZAC [Concomitant]
     Indication: PRODUCT USED FOR UNKNOWN INDICATION

REACTIONS (9)
  - Urticaria [Unknown]
  - Skin burning sensation [Unknown]
  - Lip swelling [Unknown]
  - Skin burning sensation [Unknown]
  - Pruritus [Unknown]
  - Discomfort [Unknown]
  - Feeling hot [Unknown]
  - Hypersensitivity [Unknown]
  - Discomfort [Unknown]
